FAERS Safety Report 7144915-2 (Version None)
Quarter: 2010Q4

REPORT INFORMATION
  Report Type: 
  Country: None (occurrence: None)
  Receive Date: 20101208
  Receipt Date: 20100317
  Transmission Date: 20110411
  Serious: Yes (Death, Other)
  Sender: FDA-Public Use
  Company Number: NZ-ASTRAZENECA-2010SE11802

PATIENT
  Age: 7314 Day
  Sex: Female

DRUGS (3)
  1. QUETIAPINE FUMARATE [Suspect]
     Indication: DEPRESSION
     Route: 048
     Dates: start: 20050101, end: 20050901
  2. BENZTROPINE MESYLATE [Concomitant]
     Indication: EXTRAPYRAMIDAL DISORDER
     Route: 048
     Dates: start: 20050101, end: 20050901
  3. CITALOPRAM HYDROBROMIDE [Concomitant]
     Indication: DEPRESSION
     Route: 048
     Dates: start: 20050101, end: 20050901

REACTIONS (3)
  - CARDIOMYOPATHY [None]
  - DEATH [None]
  - PULMONARY EMBOLISM [None]
